FAERS Safety Report 7553763-0 (Version None)
Quarter: 2011Q2

REPORT INFORMATION
  Report Type: 
  Country: None (occurrence: None)
  Receive Date: 20110617
  Receipt Date: 20110609
  Transmission Date: 20111010
  Serious: Yes (Death)
  Sender: FDA-Public Use
  Company Number: PL-CELGENEUS-129-CCAZA-11061275

PATIENT
  Sex: Female
  Weight: 79 kg

DRUGS (1)
  1. AZACITIDINE [Suspect]
     Dosage: 75 MILLIGRAM/SQ. METER
     Route: 065
     Dates: start: 20110513, end: 20110519

REACTIONS (1)
  - DEATH [None]
